FAERS Safety Report 8698592 (Version 3)
Quarter: 2012Q4

REPORT INFORMATION
  Report Type: 
  Country: US (occurrence: US)
  Receive Date: 20120802
  Receipt Date: 20120903
  Transmission Date: 20130627
  Serious: No
  Sender: FDA-Public Use
  Company Number: US-PFIZER INC-2012182970

PATIENT
  Age: 65 Year
  Sex: Male

DRUGS (4)
  1. VIAGRA [Suspect]
     Indication: ERECTILE DYSFUNCTION
     Dosage: 100 mg, as needed
     Route: 048
     Dates: start: 20120710, end: 20120723
  2. SIMVASTATIN [Concomitant]
     Indication: BLOOD CHOLESTEROL
     Dosage: 40 mg, UNK
     Dates: start: 200908
  3. LISINOPRIL [Concomitant]
     Indication: CORONARY ARTERY DISEASE
     Dosage: 20 mg, UNK
     Dates: start: 20120710
  4. COREG [Concomitant]
     Indication: CORONARY ARTERY DISEASE
     Dosage: 12.5 mg, UNK
     Dates: start: 200708, end: 20120710

REACTIONS (3)
  - Overdose [Unknown]
  - Drug administration error [Unknown]
  - Back pain [Recovered/Resolved]
